FAERS Safety Report 5792246-5 (Version None)
Quarter: 2008Q2

REPORT INFORMATION
  Report Type: 
  Country: None (occurrence: None)
  Receive Date: 20080626
  Receipt Date: 20080304
  Transmission Date: 20081010
  Serious: No
  Sender: FDA-Public Use
  Company Number: US-ASTRAZENECA-2008UW04382

PATIENT
  Age: 11 Year
  Sex: Male
  Weight: 74.8 kg

DRUGS (2)
  1. PULMICORT FLEXHALER [Suspect]
     Indication: CROUP INFECTIOUS
     Route: 055
  2. ALBUTEROL [Concomitant]

REACTIONS (3)
  - ABDOMINAL PAIN UPPER [None]
  - EATING DISORDER [None]
  - MALAISE [None]
